FAERS Safety Report 4860879-6 (Version None)
Quarter: 2005Q4

REPORT INFORMATION
  Report Type: 
  Country: None (occurrence: None)
  Receive Date: 20051216
  Receipt Date: 20051206
  Transmission Date: 20060501
  Serious: Yes (Hospitalization)
  Sender: FDA-Public Use
  Company Number: DE200511002084

PATIENT
  Sex: Female

DRUGS (3)
  1. GEMZAR [Suspect]
     Indication: OVARIAN CANCER
     Dosage: 1000 MG/M2, INTRAVENOUS
     Route: 042
     Dates: start: 20050801
  2. ANTIHYPERTENSIVES [Concomitant]
  3. AMITRIPTYLINE HYDROCHLORIDE [Concomitant]

REACTIONS (2)
  - INFLUENZA [None]
  - PULMONARY SARCOIDOSIS [None]
